FAERS Safety Report 10023984 (Version 2)
Quarter: 2014Q3

REPORT INFORMATION
  Report Type: Spontaneous
  Country: US (occurrence: None)
  Receive Date: 20140318
  Receipt Date: 20140929
  Transmission Date: 20150326
  Serious: Yes (Hospitalization)
  Sender: FDA-Public Use
  Company Number: 2014US003066

PATIENT
  Age: 71 Year
  Sex: Female
  Weight: 45 kg

DRUGS (17)
  1. DOCUSATE SODIUM. [Concomitant]
     Active Substance: DOCUSATE SODIUM
  2. WELLBUTRIN [Concomitant]
     Active Substance: BUPROPION HYDROCHLORIDE
  3. PONATINIB [Suspect]
     Active Substance: PONATINIB
     Indication: CHRONIC MYELOID LEUKAEMIA
     Route: 048
     Dates: start: 20090413, end: 20140303
  4. IBUPROFEN (IBUPROFEN SODIUM) [Concomitant]
  5. PERCOCET (OXOCODONE HYDROCHLORIDE, PARACETAMOL) [Concomitant]
  6. PENTOXIFYLLINE. [Concomitant]
     Active Substance: PENTOXIFYLLINE
  7. CIPROFLOXACIN. [Concomitant]
     Active Substance: CIPROFLOXACIN
  8. PRILOSEC (OMEPRAZOLE) [Concomitant]
     Active Substance: OMEPRAZOLE MAGNESIUM
  9. ASPIRIN. [Suspect]
     Active Substance: ASPIRIN
  10. ACETAMINOPHEN W/HYDROCODONE [Concomitant]
     Active Substance: ACETAMINOPHEN\HYDROCODONE
  11. PREDNISONE. [Concomitant]
     Active Substance: PREDNISONE
  12. OXYCODONE AND ACETAMINOPHEN (OXYCODONE HYDROCHLORIDE, PARACETAMOL) [Concomitant]
  13. EMEDASTINE [Concomitant]
     Active Substance: EMEDASTINE
  14. SIMVASTATIN. [Concomitant]
     Active Substance: SIMVASTATIN
  15. LEVOFLOXACIN [Concomitant]
     Active Substance: LEVOFLOXACIN
  16. OXYCODONE [Concomitant]
     Active Substance: OXYCODONE
  17. LISINOPRIL. [Concomitant]
     Active Substance: LISINOPRIL

REACTIONS (3)
  - Upper respiratory tract infection [None]
  - Colitis ischaemic [None]
  - Sinusitis [None]

NARRATIVE: CASE EVENT DATE: 20140302
